FAERS Safety Report 21195775 (Version 1)
Quarter: 2022Q3

REPORT INFORMATION
  Report Type: Spontaneous
  Country: US (occurrence: None)
  Receive Date: 20220810
  Receipt Date: 20220810
  Transmission Date: 20221026
  Serious: Yes (Disabling)
  Sender: FDA-Public Use
  Company Number: None

PATIENT
  Age: 67 Year
  Sex: Female
  Weight: 58.5 kg

DRUGS (3)
  1. LEVOFLOXACIN [Suspect]
     Active Substance: LEVOFLOXACIN
     Indication: Sinusitis
     Dosage: OTHER QUANTITY : 1 TABLET(S);?FREQUENCY : TWICE A DAY;?
     Route: 048
     Dates: start: 20211104, end: 20211114
  2. ESTRADIOL [Concomitant]
     Active Substance: ESTRADIOL
  3. multi-vitamins [Concomitant]

REACTIONS (7)
  - Pain in extremity [None]
  - Injury [None]
  - Thrombosis [None]
  - Muscle strain [None]
  - Pain in extremity [None]
  - Paraesthesia [None]
  - Sinusitis [None]

NARRATIVE: CASE EVENT DATE: 20220414
